FAERS Safety Report 19096626 (Version 1)
Quarter: 2021Q2

REPORT INFORMATION
  Report Type: Spontaneous
  Country: US (occurrence: US)
  Receive Date: 20210405
  Receipt Date: 20210405
  Transmission Date: 20210717
  Serious: Yes (Death)
  Sender: FDA-Public Use
  Company Number: None

PATIENT
  Age: 70 Year
  Sex: Male

DRUGS (17)
  1. FENTANYL. [Concomitant]
     Active Substance: FENTANYL
  2. FULPHILA [Suspect]
     Active Substance: PEGFILGRASTIM-JMDB
     Indication: LUNG CARCINOMA CELL TYPE UNSPECIFIED STAGE 0
  3. METOPROLOL TARTRATE. [Concomitant]
     Active Substance: METOPROLOL TARTRATE
  4. ELIQUIS [Concomitant]
     Active Substance: APIXABAN
  5. FOLIC ACID. [Concomitant]
     Active Substance: FOLIC ACID
  6. OLANZAPINE. [Concomitant]
     Active Substance: OLANZAPINE
  7. ONDANSETRON HCL [Concomitant]
     Active Substance: ONDANSETRON HYDROCHLORIDE
  8. RETACRIT [Concomitant]
     Active Substance: EPOETIN ALFA-EPBX
  9. DEXAMETHASONE 20 MG/5 ML VIAL [Concomitant]
  10. DOCETAXEL. [Concomitant]
     Active Substance: DOCETAXEL
  11. PERCOCET [Concomitant]
     Active Substance: ACETAMINOPHEN\OXYCODONE HYDROCHLORIDE
  12. GABAPENTIN. [Concomitant]
     Active Substance: GABAPENTIN
  13. HYDROMORPHONE HCL [Concomitant]
     Active Substance: HYDROMORPHONE HYDROCHLORIDE
  14. OMEPRAZOLE. [Concomitant]
     Active Substance: OMEPRAZOLE
  15. MULTIVITAMIN ADULTS [Concomitant]
  16. OXYCODONE HYDROCHLORIDE. [Concomitant]
     Active Substance: OXYCODONE HYDROCHLORIDE
  17. PREDNISONE. [Concomitant]
     Active Substance: PREDNISONE

REACTIONS (1)
  - Death [None]

NARRATIVE: CASE EVENT DATE: 20210405
